FAERS Safety Report 20668435 (Version 2)
Quarter: 2022Q2

REPORT INFORMATION
  Report Type: Spontaneous
  Country: US (occurrence: US)
  Receive Date: 20220404
  Receipt Date: 20220430
  Transmission Date: 20220720
  Serious: No
  Sender: FDA-Public Use
  Company Number: US-ELI_LILLY_AND_COMPANY-US202203011377

PATIENT
  Age: 49 Year
  Sex: Female

DRUGS (10)
  1. ADCIRCA [Suspect]
     Active Substance: TADALAFIL
     Indication: Pulmonary arterial hypertension
     Dosage: 40 MG, DAILY
     Route: 065
     Dates: start: 20220211
  2. VELETRI [Suspect]
     Active Substance: EPOPROSTENOL
     Indication: Pulmonary arterial hypertension
     Dosage: 10 NG, OTHER (Q1 MINUTE)
     Route: 042
     Dates: start: 20210630, end: 20210701
  3. VELETRI [Suspect]
     Active Substance: EPOPROSTENOL
     Dosage: 13 NG, OTHER (Q1 MINUTE)
     Route: 042
     Dates: start: 20210702
  4. TYVASO [Suspect]
     Active Substance: TREPROSTINIL
     Indication: Pulmonary arterial hypertension
     Dosage: 0.6 MG, QID
     Route: 065
     Dates: start: 20220224
  5. TYVASO [Suspect]
     Active Substance: TREPROSTINIL
     Dosage: 0.29 MG, QID
     Route: 065
     Dates: start: 20220224
  6. TYVASO [Suspect]
     Active Substance: TREPROSTINIL
     Dosage: 72 UG, QID (12 BREATHS)
     Route: 055
     Dates: start: 20220224
  7. TYVASO [Suspect]
     Active Substance: TREPROSTINIL
     Dosage: 108 UG, QID
     Route: 065
     Dates: start: 20220224
  8. DIGOXIN [Suspect]
     Active Substance: DIGOXIN
     Indication: Product used for unknown indication
     Dosage: UNK, UNKNOWN
     Route: 065
  9. AMBRISENTAN [Suspect]
     Active Substance: AMBRISENTAN
     Indication: Pulmonary arterial hypertension
     Dosage: 10 MG, DAILY
     Route: 065
     Dates: start: 201702
  10. AMBRISENTAN [Suspect]
     Active Substance: AMBRISENTAN
     Indication: Pulmonary hypertension

REACTIONS (10)
  - Pulmonary oedema [Unknown]
  - Heart rate abnormal [Unknown]
  - Aphasia [Unknown]
  - Chills [Unknown]
  - Paraesthesia [Unknown]
  - Pruritus [Not Recovered/Not Resolved]
  - Cough [Unknown]
  - Dizziness [Unknown]
  - Chest discomfort [Not Recovered/Not Resolved]
  - Nausea [Recovered/Resolved]

NARRATIVE: CASE EVENT DATE: 20220201
